FAERS Safety Report 7387420-0 (Version None)
Quarter: 2011Q1

REPORT INFORMATION
  Report Type: 
  Country: None (occurrence: None)
  Receive Date: 20110331
  Receipt Date: 20110322
  Transmission Date: 20110831
  Serious: Yes (Life-Threatening, Hospitalization)
  Sender: FDA-Public Use
  Company Number: NL-TEVA-273638ISR

PATIENT
  Sex: Female
  Weight: 73 kg

DRUGS (3)
  1. ETANERCEPT [Suspect]
     Indication: PSORIATIC ARTHROPATHY
     Dates: start: 20050401, end: 20091001
  2. METHOTREXATE [Suspect]
     Indication: PSORIATIC ARTHROPATHY
     Dates: start: 20020901, end: 20091001
  3. FOLIC ACID [Concomitant]
     Dates: start: 20020901, end: 20091001

REACTIONS (1)
  - PANCREATITIS NECROTISING [None]
